FAERS Safety Report 8710071 (Version 2)
Quarter: 2012Q4

REPORT INFORMATION
  Report Type: 
  Country: JP (occurrence: JP)
  Receive Date: 20120806
  Receipt Date: 20120924
  Transmission Date: 20130627
  Serious: Yes (Other)
  Sender: FDA-Public Use
  Company Number: JP-ABBOTT-12P-087-0964018-00

PATIENT
  Age: 59 Year
  Sex: Male

DRUGS (2)
  1. CLARITHROMYCIN [Suspect]
     Indication: SINUSITIS
     Route: 048
  2. AMLODIN [Concomitant]
     Indication: HYPERTENSION

REACTIONS (2)
  - Loss of consciousness [Recovered/Resolved]
  - Drug interaction [Unknown]
